FAERS Safety Report 9738021 (Version 2)
Quarter: 2013Q4

REPORT INFORMATION
  Report Type: Spontaneous
  Country: US (occurrence: US)
  Receive Date: 20131208
  Receipt Date: 20131208
  Transmission Date: 20140711
  Serious: No
  Sender: FDA-Public Use
  Company Number: -SAAVPROD-RENA-1001979

PATIENT
  Sex: 0

DRUGS (1)
  1. SEVELAMER CARBONATE [Suspect]
     Indication: PRODUCT USED FOR UNKNOWN INDICATION
     Dosage: 10.4 G,  (3 TABLETS WITH MEALS AND 2 TABLETS WITH SNACKS)
     Route: 048

REACTIONS (1)
  - Constipation [Not Recovered/Not Resolved]
